FAERS Safety Report 15171493 (Version 2)
Quarter: 2019Q4

REPORT INFORMATION
  Report Type: Other
  Country: GB (occurrence: GB)
  Receive Date: 20180720
  Receipt Date: 20191023
  Transmission Date: 20200122
  Serious: Yes (Other)
  Sender: FDA-Public Use
  Company Number: GB-GLENMARK PHARMACEUTICALS-2018GMK036594

PATIENT

DRUGS (11)
  1. PROPOFOL. [Interacting]
     Active Substance: PROPOFOL
     Indication: SEDATION
     Dosage: 3.3 MCG/ML
     Route: 040
     Dates: start: 20180514, end: 20180514
  2. GABAPENTIN. [Suspect]
     Active Substance: GABAPENTIN
     Indication: PRODUCT USED FOR UNKNOWN INDICATION
     Dosage: 600 MG (THE NIGHT BEFORE SURGERY AND ON THE MORNING OF SURGERY; IN TOTAL)
     Route: 065
     Dates: start: 20180513, end: 20180515
  3. REMIFENTANIL [Interacting]
     Active Substance: REMIFENTANIL
     Indication: SEDATION
     Dosage: 0.14 ?G/KG, PER MINUTE
     Route: 040
     Dates: start: 20180514, end: 20180514
  4. TRANEXAMIC ACID. [Interacting]
     Active Substance: TRANEXAMIC ACID
     Indication: SEDATION
     Dosage: UNK
     Route: 065
     Dates: start: 20180514, end: 20180514
  5. FENTANYL. [Interacting]
     Active Substance: FENTANYL
     Indication: SEDATION
     Dosage: 100 ?G (IN TOTAL); FENTANYL CONTINUE AS PART OF THE PATIENT^S PAIN RELIEF AS A PATIENT CONTROLLED IN
     Route: 040
     Dates: start: 20180514, end: 20180516
  6. DIAZEPAM. [Interacting]
     Active Substance: DIAZEPAM
     Indication: PROCEDURAL ANXIETY
     Dosage: 3.5 MG, UNK
     Route: 065
     Dates: start: 20180513, end: 20180513
  7. CLONIDINE. [Interacting]
     Active Substance: CLONIDINE
     Indication: SEDATION
     Dosage: 60 MCG, UNK, 4 ALIQUOTS OF 15 MICROGRAMS OVER SEVERAL HOURS ; IN TOTAL
     Route: 040
     Dates: start: 20180514, end: 20180514
  8. MIDAZOLAM [Interacting]
     Active Substance: MIDAZOLAM HYDROCHLORIDE
     Indication: INDUCTION OF ANAESTHESIA
     Dosage: 20 MG (HALF AN HOUR BEFORE INDUCTION OF ANAESTHESIA)
     Route: 065
     Dates: start: 20180514, end: 20180514
  9. MAGNESIUM SULFATE. [Interacting]
     Active Substance: MAGNESIUM SULFATE
     Indication: PRODUCT USED FOR UNKNOWN INDICATION
     Dosage: 2.5 G, QID (EVERY 6 HOURS)
     Route: 065
  10. KETAMINE [Interacting]
     Active Substance: KETAMINE
     Indication: SEDATION
     Dosage: 50 MG, UNK, 25 MG BEFORE SKIN INCISION AND 25 MG ABOUT AN OUR BEFORE THE END OF SURGERY; IN TOTAL
     Route: 040
     Dates: start: 20180514, end: 20180514
  11. GABAPENTIN. [Concomitant]
     Active Substance: GABAPENTIN
     Indication: PRODUCT USED FOR UNKNOWN INDICATION
     Dosage: 900 MG, OD
     Route: 065
     Dates: start: 20180513, end: 20180515

REACTIONS (7)
  - Disorientation [Recovered/Resolved]
  - Drug interaction [Unknown]
  - Confusional state [Recovered/Resolved]
  - Aphasia [Recovered/Resolved]
  - Somnolence [Recovered/Resolved]
  - Delirium [Recovered/Resolved]
  - Nystagmus [Recovered/Resolved]

NARRATIVE: CASE EVENT DATE: 20180514
